FAERS Safety Report 6304240-6 (Version None)
Quarter: 2009Q3

REPORT INFORMATION
  Report Type: 
  Country: None (occurrence: None)
  Receive Date: 20090811
  Receipt Date: 20090731
  Transmission Date: 20100115
  Serious: Yes (Hospitalization)
  Sender: FDA-Public Use
  Company Number: US-JNJFOC-20090800636

PATIENT
  Sex: Female
  Weight: 88 kg

DRUGS (8)
  1. REMICADE [Suspect]
     Route: 042
  2. REMICADE [Suspect]
     Dosage: 10 MG/KG ON 19-MAY-2004 AND 14-JUL-2004
     Route: 042
  3. REMICADE [Suspect]
     Dosage: 10 MG/KG  ON 19-MAY-2004 AND 14-JUL-2004
     Route: 042
  4. REMICADE [Suspect]
     Dosage: 10 MG/KG  ON 19-MAY-2004 AND 14-JUL-2004
     Route: 042
  5. REMICADE [Suspect]
     Indication: CROHN'S DISEASE
     Dosage: 10 MG/KG  ON 19-MAY-2004 AND 14-JUL-2004
     Route: 042
  6. ANTIBIOTICS [Concomitant]
  7. ANTISPASMODIC [Concomitant]
     Indication: CROHN'S DISEASE
  8. METHOTREXATE [Concomitant]
     Indication: CROHN'S DISEASE

REACTIONS (1)
  - OESOPHAGITIS [None]
